FAERS Safety Report 10169023 (Version 2)
Quarter: 2014Q2

REPORT INFORMATION
  Report Type: Spontaneous
  Country: FR (occurrence: FR)
  Receive Date: 20140513
  Receipt Date: 20140529
  Transmission Date: 20141212
  Serious: Yes (Hospitalization, Other)
  Sender: FDA-Public Use
  Company Number: FR-ASTRAZENECA-2014SE30942

PATIENT
  Age: 14838 Day
  Sex: Female

DRUGS (2)
  1. INEXIUM [Suspect]
     Indication: GASTROOESOPHAGEAL REFLUX DISEASE
     Route: 048
     Dates: start: 20140216
  2. ADULTS POLERY [Suspect]
     Indication: COUGH
     Route: 048
     Dates: start: 20140215, end: 20140216

REACTIONS (9)
  - Cell death [Unknown]
  - Hypotension [Recovered/Resolved]
  - Abdominal pain upper [Recovered/Resolved]
  - Urticaria [Recovered/Resolved]
  - Pelvic pain [Recovered/Resolved]
  - Vomiting [Recovered/Resolved]
  - Aspartate aminotransferase increased [Unknown]
  - Abdominal pain [Unknown]
  - Alanine aminotransferase increased [Unknown]
